FAERS Safety Report 10750559 (Version 1)
Quarter: 2015Q1

REPORT INFORMATION
  Report Type: Spontaneous
  Country: GR (occurrence: GR)
  Receive Date: 20150130
  Receipt Date: 20150130
  Transmission Date: 20150721
  Serious: Yes (Hospitalization)
  Sender: FDA-Public Use
  Company Number: GR-ACCORD-028286

PATIENT
  Age: 75 Year
  Sex: Male

DRUGS (2)
  1. CLARITHROMYCIN/CLARITHROMYCIN LACTOBIONATE [Interacting]
     Active Substance: CLARITHROMYCIN LACTOBIONATE
     Indication: PYREXIA
     Dosage: 500 MG EVERY 12 HOURS
  2. QUETIAPINE [Suspect]
     Active Substance: QUETIAPINE
     Indication: INSOMNIA
     Dosage: QUETIAPINE IR

REACTIONS (7)
  - Self-medication [Unknown]
  - Drug level increased [Unknown]
  - Off label use [Unknown]
  - Drug ineffective [None]
  - Neuroleptic malignant syndrome [Recovering/Resolving]
  - Drug interaction [Unknown]
  - General physical health deterioration [None]
